FAERS Safety Report 23717556 (Version 1)
Quarter: 2024Q2

REPORT INFORMATION
  Report Type: Spontaneous
  Country: US (occurrence: US)
  Receive Date: 20240408
  Receipt Date: 20240408
  Transmission Date: 20240716
  Serious: No
  Sender: FDA-Public Use
  Company Number: US-ABBVIE-5710167

PATIENT

DRUGS (3)
  1. VRAYLAR [Suspect]
     Active Substance: CARIPRAZINE
     Indication: Major depression
     Dosage: FORM STRENGTH- 3 MILLIGRAM
     Route: 048
  2. VRAYLAR [Suspect]
     Active Substance: CARIPRAZINE
     Indication: Major depression
     Dosage: FORM STRENGTH- 1.5 MILLIGRAM
     Route: 048
  3. VRAYLAR [Suspect]
     Active Substance: CARIPRAZINE
     Indication: Major depression
     Dosage: FORM STRENGTH- 1.5 MILLIGRAM
     Route: 048

REACTIONS (2)
  - Muscle twitching [Unknown]
  - Drug ineffective [Unknown]
